FAERS Safety Report 16714551 (Version 10)
Quarter: 2020Q3

REPORT INFORMATION
  Report Type: Spontaneous
  Country: DE (occurrence: DE)
  Receive Date: 20190819
  Receipt Date: 20200708
  Transmission Date: 20201102
  Serious: Yes (Other)
  Sender: FDA-Public Use
  Company Number: PHHY2019DE188505

PATIENT
  Sex: Female

DRUGS (77)
  1. OMEPRAZOLE. [Suspect]
     Active Substance: OMEPRAZOLE
     Indication: PRODUCT USED FOR UNKNOWN INDICATION
     Dosage: 2 DF, QD (1 DF, 2X/DAY (1 ? 0 ? 1))
     Route: 048
  2. QUENSYL [Suspect]
     Active Substance: HYDROXYCHLOROQUINE
     Dosage: 80 MG, QD (40 MG, BID (80MG/DAY))
     Route: 065
  3. QUENSYL [Suspect]
     Active Substance: HYDROXYCHLOROQUINE
     Dosage: 40 MG, BID (80MG/DAY)
     Route: 065
  4. SPASMOLYT [Suspect]
     Active Substance: TROSPIUM CHLORIDE
     Dosage: 15 MG, QD
     Route: 065
  5. SPASMOLYT [Suspect]
     Active Substance: TROSPIUM CHLORIDE
     Dosage: 30 MG, QD
     Route: 065
  6. SPASMOLYT [Suspect]
     Active Substance: TROSPIUM CHLORIDE
     Dosage: 30 MG, QD
     Route: 065
  7. SPASMOLYT [Suspect]
     Active Substance: TROSPIUM CHLORIDE
     Dosage: 1 DF, QD
     Route: 065
  8. ROACTEMRA [Suspect]
     Active Substance: TOCILIZUMAB
     Indication: RHEUMATOID ARTHRITIS
     Dosage: 162 MG, QW (SOLUTION FOR INJECTION IN PRE?FILLED SYRINGE)
     Route: 058
     Dates: start: 20150427
  9. LYRICA [Suspect]
     Active Substance: PREGABALIN
     Dosage: 1 DF, TID (1 DF, 3X/DAY (1 ? 1? 1))
     Route: 065
  10. LYRICA [Suspect]
     Active Substance: PREGABALIN
     Dosage: 1 DF, TID (1 DF, 3X/DAY (1 ? 1? 1))
     Route: 065
  11. APIXABAN [Suspect]
     Active Substance: APIXABAN
     Dosage: 2 DF, QD
     Route: 065
  12. QUENSYL [Suspect]
     Active Substance: HYDROXYCHLOROQUINE
     Dosage: 1 DF, BID (1 ? 0 ? 1); 1 NUMBER OF UNITS IN THE INTERVAL: 12 DEFINITION OF THE INTERVAL
     Route: 065
  13. QUENSYL [Suspect]
     Active Substance: HYDROXYCHLOROQUINE
     Dosage: 40 MG, QD (20 MG BID (40 MG/DAY))
     Route: 065
  14. QUENSYL [Suspect]
     Active Substance: HYDROXYCHLOROQUINE
     Dosage: 40 MG, BID (80MG/DAY)
     Route: 065
  15. VOLIBRIS [Suspect]
     Active Substance: AMBRISENTAN
     Indication: GOUT
     Dosage: 1 DF, QD
     Route: 048
  16. VOLIBRIS [Suspect]
     Active Substance: AMBRISENTAN
     Dosage: 1 DF, QD
     Route: 048
  17. VOLIBRIS [Suspect]
     Active Substance: AMBRISENTAN
     Dosage: 30 MG, QD
     Route: 048
  18. VOLIBRIS [Suspect]
     Active Substance: AMBRISENTAN
     Dosage: 30 MG, QD
     Route: 048
  19. VOLIBRIS [Suspect]
     Active Substance: AMBRISENTAN
     Dosage: 1 DF, QD
     Route: 048
  20. LYRICA [Suspect]
     Active Substance: PREGABALIN
     Dosage: 1 DF, TID (1 DF, 3X/DAY (1 ? 1? 1))
     Route: 065
  21. APIXABAN [Suspect]
     Active Substance: APIXABAN
     Dosage: 5 MG, QD (2.5 MILLIGRAM, BID)
     Route: 065
  22. AMBRISENTAN [Suspect]
     Active Substance: AMBRISENTAN
     Dosage: UNK
     Route: 065
  23. AMBRISENTAN [Suspect]
     Active Substance: AMBRISENTAN
     Dosage: 30 MG, QD
     Route: 065
  24. SPASMOLYT [Suspect]
     Active Substance: TROSPIUM CHLORIDE
     Dosage: 15 MG, QD
     Route: 065
  25. SPASMOLYT [Suspect]
     Active Substance: TROSPIUM CHLORIDE
     Dosage: 30 MG, QD
     Route: 065
  26. SPASMOLYT [Suspect]
     Active Substance: TROSPIUM CHLORIDE
     Dosage: 30 MG, QD
     Route: 065
  27. ROACTEMRA [Suspect]
     Active Substance: TOCILIZUMAB
     Indication: RHEUMATOID ARTHRITIS
     Dosage: 162 MG, QW
     Route: 058
     Dates: start: 20190118, end: 2019
  28. LYRICA [Suspect]
     Active Substance: PREGABALIN
     Indication: PRODUCT USED FOR UNKNOWN INDICATION
     Dosage: 300 MG, QD (100 MILLIGRAM, TID)
     Route: 065
  29. LYRICA [Suspect]
     Active Substance: PREGABALIN
     Dosage: 3 DF, QD (1 DF, TID (1 DF, 3X/DAY (1 ? 1? 1)))
     Route: 065
  30. TOCILIZUMAB. [Suspect]
     Active Substance: TOCILIZUMAB
     Dosage: 162 MG, QW
     Route: 058
     Dates: start: 20190118
  31. RAMIPRIL. [Suspect]
     Active Substance: RAMIPRIL
     Indication: PRODUCT USED FOR UNKNOWN INDICATION
     Dosage: 2 DF, QD (1 DF, 2X/DAY (1 ? 0 ? 1); 1 NUMBER OF UNITS IN THE INTERVAL: 12 DEFINITION OF THE INTERVAL
     Route: 048
  32. APIXABAN [Suspect]
     Active Substance: APIXABAN
     Dosage: 2.5 MG, BID
     Route: 065
  33. QUENSYL [Suspect]
     Active Substance: HYDROXYCHLOROQUINE
     Dosage: 40 MG, BID (80MG/DAY)
     Route: 065
  34. SPASMOLYT [Suspect]
     Active Substance: TROSPIUM CHLORIDE
     Dosage: 30 MG, QD
     Route: 065
  35. ELIQUIS [Suspect]
     Active Substance: APIXABAN
     Indication: CEREBROVASCULAR ACCIDENT PROPHYLAXIS
     Dosage: 2 DF, QD
     Route: 065
  36. LYRICA [Suspect]
     Active Substance: PREGABALIN
     Dosage: 100 MG, TID
     Route: 065
  37. LYRICA [Suspect]
     Active Substance: PREGABALIN
     Dosage: 1 DF, TID (1 DF, 3X/DAY (1 ? 1? 1))
     Route: 065
  38. AMBRISENTAN [Suspect]
     Active Substance: AMBRISENTAN
     Dosage: 30 MG, QD
     Route: 065
  39. QUENSYL [Suspect]
     Active Substance: HYDROXYCHLOROQUINE
     Dosage: 1 DF, BID (1 ? 0 ? 1); 1 NUMBER OF UNITS IN THE INTERVAL: 12 DEFINITION OF THE INTERVAL
     Route: 065
  40. SPASMOLYT [Suspect]
     Active Substance: TROSPIUM CHLORIDE
     Dosage: 1 DF, QD; 1 NUMBER OF UNITS IN THE INTERVAL: 1 DEFINITION OF THE INTERVAL: DAY
     Route: 065
  41. SPASMOLYT [Suspect]
     Active Substance: TROSPIUM CHLORIDE
     Dosage: 15 MG, QD
     Route: 065
  42. VOLIBRIS [Suspect]
     Active Substance: AMBRISENTAN
     Dosage: 30 MG, QD
     Route: 048
  43. VOLIBRIS [Suspect]
     Active Substance: AMBRISENTAN
     Dosage: 30 MG, QD
     Route: 048
  44. TOCILIZUMAB. [Suspect]
     Active Substance: TOCILIZUMAB
     Indication: RHEUMATOID ARTHRITIS
     Dosage: 162 MG, QW
     Route: 058
     Dates: start: 20150427
  45. OMEPRAZOLE. [Suspect]
     Active Substance: OMEPRAZOLE
     Dosage: 40 MG, QD (20 MG, BID)
     Route: 065
  46. QUENSYL [Suspect]
     Active Substance: HYDROXYCHLOROQUINE
     Dosage: 20 MG, BID (40 MG/DAY)
     Route: 065
  47. QUENSYL [Suspect]
     Active Substance: HYDROXYCHLOROQUINE
     Dosage: 20 MG, BID (40 MG/DAY)
     Route: 065
  48. QUENSYL [Suspect]
     Active Substance: HYDROXYCHLOROQUINE
     Dosage: 40 MG, BID (80MG/DAY)
     Route: 065
  49. SPASMOLYT [Suspect]
     Active Substance: TROSPIUM CHLORIDE
     Indication: PRODUCT USED FOR UNKNOWN INDICATION
     Dosage: 30 MG, QD (NUMBER OF SEPARATE DOSAGES: 1 NUMBER OF UNITS IN THE INTERVAL: 1 DEFINITION OF THE INTERV
     Route: 065
  50. SPASMOLYT [Suspect]
     Active Substance: TROSPIUM CHLORIDE
     Dosage: 30 MG, QD; NUMBER OF SEPARATE DOSAGES: 1 NUMBER OF UNITS IN THE INTERVAL: 1 DEFINITION OF THE INTERV
     Route: 065
  51. SPASMOLYT [Suspect]
     Active Substance: TROSPIUM CHLORIDE
     Dosage: 30 MG, QD; NUMBER OF SEPARATE DOSAGES: 1 NUMBER OF UNITS IN THE INTERVAL: 1 DEFINITION OF THE INTERV
     Route: 065
  52. SPASMOLYT [Suspect]
     Active Substance: TROSPIUM CHLORIDE
     Dosage: 1 DF, QD
     Route: 065
  53. VOLIBRIS [Suspect]
     Active Substance: AMBRISENTAN
     Dosage: 1 DF, QD
     Route: 048
  54. RAMIPRIL. [Suspect]
     Active Substance: RAMIPRIL
     Dosage: 5 MG, QD
     Route: 065
  55. PREGABALIN. [Suspect]
     Active Substance: PREGABALIN
     Indication: PRODUCT USED FOR UNKNOWN INDICATION
     Dosage: 3 DF, QD
     Route: 065
  56. APIXABAN [Suspect]
     Active Substance: APIXABAN
     Indication: CEREBROVASCULAR ACCIDENT PROPHYLAXIS
     Dosage: 2 DF (1 DOSAGE FORM, BID (1?0?1)  )
     Route: 065
  57. AMBRISENTAN [Suspect]
     Active Substance: AMBRISENTAN
     Indication: PULMONARY HYPERTENSION
     Dosage: 30 MG, QD (FILM COATED TABLET)
     Route: 065
  58. QUENSYL [Suspect]
     Active Substance: HYDROXYCHLOROQUINE
     Indication: PRODUCT USED FOR UNKNOWN INDICATION
     Dosage: 2 DF, QD (1 DF, BID (1 ? 0 ? 1); 1 NUMBER OF UNITS IN THE INTERVAL: 12 DEFINITION OF THE INTERVAL)
     Route: 065
  59. QUENSYL [Suspect]
     Active Substance: HYDROXYCHLOROQUINE
     Dosage: 20 MG, BID (40 MG/DAY)
     Route: 065
  60. SPASMOLYT [Suspect]
     Active Substance: TROSPIUM CHLORIDE
     Dosage: 1 DF, QD
     Route: 065
  61. SPASMOLYT [Suspect]
     Active Substance: TROSPIUM CHLORIDE
     Dosage: 1 DF, QD; 1 NUMBER OF UNITS IN THE INTERVAL: 1 DEFINITION OF THE INTERVAL: DAY
     Route: 065
  62. SPASMOLYT [Suspect]
     Active Substance: TROSPIUM CHLORIDE
     Dosage: 15 MG, QD
     Route: 065
  63. ELIQUIS [Suspect]
     Active Substance: APIXABAN
     Dosage: 2.5 MG BID
     Route: 065
  64. VOLIBRIS [Suspect]
     Active Substance: AMBRISENTAN
     Indication: PULMONARY HYPERTENSION
     Dosage: 30 MG, QD
     Route: 048
  65. VOLIBRIS [Suspect]
     Active Substance: AMBRISENTAN
     Dosage: 1 DF, QD
     Route: 048
  66. LYRICA [Suspect]
     Active Substance: PREGABALIN
     Dosage: 100 MG, TID
     Route: 065
  67. SILDENAFIL CITRATE. [Suspect]
     Active Substance: SILDENAFIL CITRATE
     Indication: PULMONARY HYPERTENSION
     Dosage: 60 MG, QD
     Route: 065
  68. AMBRISENTAN [Suspect]
     Active Substance: AMBRISENTAN
     Indication: GOUT
     Dosage: 1 DF, QD
     Route: 065
  69. QUENSYL [Suspect]
     Active Substance: HYDROXYCHLOROQUINE
     Dosage: 20 MG, BID (40 MG/DAY)
     Route: 065
  70. SPASMOLYT [Suspect]
     Active Substance: TROSPIUM CHLORIDE
     Dosage: 1 DF, QD; 1 NUMBER OF UNITS IN THE INTERVAL: 1 DEFINITION OF THE INTERVAL: DAY
     Route: 065
  71. SPASMOLYT [Suspect]
     Active Substance: TROSPIUM CHLORIDE
     Dosage: 15 MG, QD
     Route: 065
  72. SPASMOLYT [Suspect]
     Active Substance: TROSPIUM CHLORIDE
     Dosage: 30 MG, QD
     Route: 065
  73. VOLIBRIS [Suspect]
     Active Substance: AMBRISENTAN
     Dosage: 1 DF, QD
     Route: 048
  74. VOLIBRIS [Suspect]
     Active Substance: AMBRISENTAN
     Dosage: 1 DF, QD
     Route: 048
  75. VOLIBRIS [Suspect]
     Active Substance: AMBRISENTAN
     Dosage: 30 MG, QD
     Route: 048
  76. LYRICA [Suspect]
     Active Substance: PREGABALIN
     Dosage: 100 MG, TID
     Route: 065
  77. LYRICA [Suspect]
     Active Substance: PREGABALIN
     Dosage: 100 MG, TID
     Route: 065

REACTIONS (11)
  - Pain in extremity [Recovered/Resolved]
  - Nasopharyngitis [Recovered/Resolved]
  - Peripheral coldness [Recovered/Resolved]
  - Ligament sprain [Recovering/Resolving]
  - Paraesthesia [Recovered/Resolved]
  - Oedema peripheral [Recovered/Resolved]
  - Arthralgia [Recovered/Resolved]
  - Pulmonary hypertension [Recovering/Resolving]
  - Arthropathy [Unknown]
  - Therapeutic product effect incomplete [Unknown]
  - Visual impairment [Not Recovered/Not Resolved]

NARRATIVE: CASE EVENT DATE: 2018
